FAERS Safety Report 6734248-8 (Version None)
Quarter: 2010Q2

REPORT INFORMATION
  Report Type: 
  Country: None (occurrence: None)
  Receive Date: 20100520
  Receipt Date: 20100511
  Transmission Date: 20101027
  Serious: Yes (Other)
  Sender: FDA-Public Use
  Company Number: PHHY2010FI31488

PATIENT
  Age: 44 Year
  Sex: Female

DRUGS (2)
  1. SANDIMMUNE [Suspect]
     Indication: RENAL TRANSPLANT
     Dosage: 50MG EVERY OTHER DAY AND WITH DOSE 50MG AND 75MG EVERY OTHER DAY
  2. MEDROL [Concomitant]

REACTIONS (2)
  - CHEST PAIN [None]
  - HEART RATE INCREASED [None]
